FAERS Safety Report 8237416-1 (Version None)
Quarter: 2012Q1

REPORT INFORMATION
  Report Type: 
  Country: None (occurrence: None)
  Receive Date: 20120327
  Receipt Date: 20120314
  Transmission Date: 20120608
  Serious: Yes (Hospitalization)
  Sender: FDA-Public Use
  Company Number: CZ-PFIZER INC-2012047952

PATIENT
  Age: 64 Year
  Sex: Female
  Weight: 85.9 kg

DRUGS (18)
  1. FORMOTEROL [Concomitant]
     Indication: BRONCHITIS CHRONIC
     Dosage: 1 DF, 2X/DAY
     Route: 048
     Dates: start: 20100331
  2. PIRACETAM [Concomitant]
     Indication: CEREBROVASCULAR ACCIDENT
     Dosage: 1200 MG, 2X/DAY
     Route: 048
     Dates: start: 20110201
  3. BECLOMETHASONE DIPROPIONATE [Concomitant]
     Indication: BRONCHITIS CHRONIC
     Dosage: 1 DF, 2X/DAY
     Route: 048
     Dates: start: 20080901
  4. DICLOFENAC [Concomitant]
     Indication: RHEUMATOID ARTHRITIS
     Dosage: 75 MG, AS NEEDED
     Route: 048
     Dates: start: 20110104
  5. MICARDIS [Concomitant]
     Indication: HYPERTENSION
     Dosage: 40 MG, 1X/DAY
     Route: 048
     Dates: start: 20091201
  6. OMEPRAZOLE [Concomitant]
     Indication: PROPHYLAXIS AGAINST GASTROINTESTINAL ULCER
     Dosage: 20 MG, 2X/DAY
     Route: 048
     Dates: start: 20100601
  7. FOLIC ACID [Concomitant]
     Indication: DRUG TOXICITY PROPHYLAXIS
     Dosage: 10 MG, WEEKLY
     Route: 048
     Dates: start: 20070620
  8. LETROX [Concomitant]
     Indication: HYPOTHYROIDISM
     Dosage: 125 MG, 1X/DAY
     Route: 048
     Dates: start: 20010101
  9. ISOPRINOSIN [Concomitant]
     Indication: PROPHYLAXIS
     Dosage: 500 MG, 2X/DAY
     Route: 048
     Dates: start: 20090901
  10. CLOPIDOGREL [Concomitant]
     Indication: ISCHAEMIC HEART DISEASE PROPHYLAXIS
     Dosage: 75 MG, 1X/DAY
     Route: 048
     Dates: start: 20100604
  11. METHOTREXATE [Suspect]
     Indication: RHEUMATOID ARTHRITIS
     Dosage: 10 MG, WEEKLY
     Route: 048
     Dates: start: 20120101, end: 20120214
  12. TROSPIUM CHLORIDE [Concomitant]
     Indication: HYPERTONIC BLADDER
     Dosage: 15 MG, 2X/DAY
     Route: 048
     Dates: start: 20111201
  13. ROSUVASTATIN CALCIUM [Concomitant]
     Indication: HYPERCHOLESTEROLAEMIA
     Dosage: 40 MG, 1X/DAY
     Route: 048
     Dates: start: 20110701
  14. CP-690,550 [Suspect]
     Indication: RHEUMATOID ARTHRITIS
     Dosage: 10 MG, 2X/DAY
     Route: 048
     Dates: start: 20110103, end: 20111225
  15. CP-690,550 [Suspect]
     Dosage: 10 MG, 2X/DAY
     Route: 048
     Dates: start: 20120107, end: 20120216
  16. METHYLPREDNISOLONE SODIUM SUCCINATE [Suspect]
     Indication: RHEUMATOID ARTHRITIS
     Dosage: 4 MG, 1X/DAY
     Route: 048
     Dates: start: 20110331
  17. CALCIUM CARBONATE [Concomitant]
     Indication: OSTEOPOROSIS PROPHYLAXIS
     Dosage: 1 DF, 1X/DAY
     Route: 048
     Dates: start: 20010101
  18. ZOLOFT [Concomitant]
     Indication: PROPHYLAXIS
     Dosage: 50 MG, 1X/DAY
     Route: 048
     Dates: start: 19960101

REACTIONS (3)
  - HERPES ZOSTER MULTI-DERMATOMAL [None]
  - HEADACHE [None]
  - URINARY TRACT INFECTION [None]
